FAERS Safety Report 6558163-8 (Version None)
Quarter: 2010Q1

REPORT INFORMATION
  Report Type: 
  Country: None (occurrence: None)
  Receive Date: 20100129
  Receipt Date: 20100121
  Transmission Date: 20100710
  Serious: Yes (Hospitalization, Disabling)
  Sender: FDA-Public Use
  Company Number: B0629532A

PATIENT
  Sex: Female

DRUGS (2)
  1. NEOTIGASON [Suspect]
     Indication: DRUG USE FOR UNKNOWN INDICATION
     Route: 065
  2. HUMIRA [Suspect]
     Indication: RHEUMATOID ARTHRITIS
     Dosage: 40MG EVERY TWO WEEKS
     Route: 065
     Dates: start: 20060503

REACTIONS (8)
  - ALOPECIA [None]
  - ANDROGENETIC ALOPECIA [None]
  - DERMATITIS [None]
  - HYPERSENSITIVITY [None]
  - NAIL PSORIASIS [None]
  - PRURITUS GENERALISED [None]
  - RASH [None]
  - SKIN HYPERTROPHY [None]
